FAERS Safety Report 4621113-5 (Version None)
Quarter: 2005Q1

REPORT INFORMATION
  Report Type: 
  Country: None (occurrence: None)
  Receive Date: 20050328
  Receipt Date: 20050315
  Transmission Date: 20050727
  Serious: Yes (Disabling)
  Sender: FDA-Public Use
  Company Number: 212355

PATIENT
  Age: 52 Year
  Sex: 0

DRUGS (21)
  1. MABTHERA (RITUXIMAB) CONC FOR SOLUTION FOR INFUSION [Suspect]
     Indication: MANTLE CELL LYMPHOMA
     Dosage: SEE IMAGE
     Route: 042
     Dates: start: 20040816, end: 20040816
  2. MABTHERA (RITUXIMAB) CONC FOR SOLUTION FOR INFUSION [Suspect]
     Indication: MANTLE CELL LYMPHOMA
     Dosage: SEE IMAGE
     Route: 042
     Dates: start: 20040913, end: 20040913
  3. MABTHERA (RITUXIMAB) CONC FOR SOLUTION FOR INFUSION [Suspect]
     Indication: MANTLE CELL LYMPHOMA
     Dosage: SEE IMAGE
     Route: 042
     Dates: start: 20041011, end: 20041011
  4. MABTHERA (RITUXIMAB) CONC FOR SOLUTION FOR INFUSION [Suspect]
     Indication: MANTLE CELL LYMPHOMA
     Dosage: SEE IMAGE
     Route: 042
     Dates: start: 20041122, end: 20041122
  5. FLUDARABINE PHOSPHATE [Suspect]
     Indication: MANTLE CELL LYMPHOMA
     Dosage: SEE IMAGE
     Route: 042
     Dates: start: 20040816, end: 20040816
  6. FLUDARABINE PHOSPHATE [Suspect]
     Indication: MANTLE CELL LYMPHOMA
     Dosage: SEE IMAGE
     Route: 042
     Dates: start: 20040913, end: 20040915
  7. FLUDARABINE PHOSPHATE [Suspect]
     Indication: MANTLE CELL LYMPHOMA
     Dosage: SEE IMAGE
     Route: 042
     Dates: start: 20041011, end: 20041014
  8. FLUDARABINE PHOSPHATE [Suspect]
     Indication: MANTLE CELL LYMPHOMA
     Dosage: SEE IMAGE
     Route: 042
     Dates: start: 20041122, end: 20041125
  9. CYCLOPHOSPHAMIDE [Suspect]
     Indication: MANTLE CELL LYMPHOMA
     Dosage: SEE IMAGE
     Route: 048
     Dates: start: 20040816, end: 20040818
  10. CYCLOPHOSPHAMIDE [Suspect]
     Indication: MANTLE CELL LYMPHOMA
     Dosage: SEE IMAGE
     Route: 048
     Dates: start: 20040913, end: 20040915
  11. CYCLOPHOSPHAMIDE [Suspect]
     Indication: MANTLE CELL LYMPHOMA
     Dosage: SEE IMAGE
     Route: 048
     Dates: start: 20041011, end: 20041014
  12. CYCLOPHOSPHAMIDE [Suspect]
     Indication: MANTLE CELL LYMPHOMA
     Dosage: SEE IMAGE
     Route: 048
     Dates: start: 20041122, end: 20041125
  13. ONDANSETRON HCL [Concomitant]
  14. MAXOLAN (METOCLOPRAMIDE HYDROCHLORIDE) [Concomitant]
  15. ALLOPURINOL [Concomitant]
  16. SEPTIRN (SULFAMETHOXAZOLE, TRIMETHOPRIM) [Concomitant]
  17. FOLNIC ACID( LEUCOVORIN CALCIUM) [Concomitant]
  18. FORTIJUICE (HERBAL, HOMEOPATHIC, +DIETARY SUPPLEMENTS) [Concomitant]
  19. CALSHAKE (HERBAL, HOMEOPATHIC, + DIETARY SUPPLEMENTS) [Concomitant]
  20. METOCLOPRAMIDE (METOCLOPRAMIDE HYDROCHLORIDE) [Concomitant]
  21. SULFAMETHOXAZOLE + TRIMETHOPRIM [Concomitant]

REACTIONS (6)
  - ANAEMIA [None]
  - BONE MARROW DEPRESSION [None]
  - LEUKOPENIA [None]
  - MACROCYTOSIS [None]
  - NEUTROPENIA [None]
  - THROMBOCYTOPENIA [None]
